FAERS Safety Report 12781946 (Version 1)
Quarter: 2016Q3

REPORT INFORMATION
  Report Type: Spontaneous
  Country: US (occurrence: US)
  Receive Date: 20160927
  Receipt Date: 20160927
  Transmission Date: 20161109
  Serious: No
  Sender: FDA-Public Use
  Company Number: US-ASTRAZENECA-2016SE41933

PATIENT
  Sex: Female
  Weight: 88.5 kg

DRUGS (1)
  1. BYDUREON [Suspect]
     Active Substance: EXENATIDE
     Dosage: 2 MG ONCE WEEK
     Route: 058
     Dates: start: 2015

REACTIONS (4)
  - Drug dispensing error [Unknown]
  - Diarrhoea [Recovering/Resolving]
  - Nausea [Unknown]
  - Drug dose omission [Unknown]
